FAERS Safety Report 6287171-X (Version None)
Quarter: 2009Q3

REPORT INFORMATION
  Report Type: 
  Country: None (occurrence: None)
  Receive Date: 20090728
  Receipt Date: 20090720
  Transmission Date: 20100115
  Serious: Yes (Life-Threatening, Other)
  Sender: FDA-Public Use
  Company Number: GB-CELGENEUS-167-20484-09071637

PATIENT
  Sex: Female
  Weight: 111 kg

DRUGS (6)
  1. INNOHEP [Suspect]
     Route: 051
     Dates: start: 20060628, end: 20060902
  2. INNOHEP [Suspect]
     Route: 051
     Dates: start: 20060903, end: 20061225
  3. INNOHEP [Suspect]
     Route: 051
     Dates: start: 20061227, end: 20070110
  4. INNOHEP [Suspect]
     Route: 051
     Dates: start: 20070111, end: 20071014
  5. SYNTOCINON [Concomitant]
     Indication: DELIVERY
     Route: 065
     Dates: start: 20061225, end: 20061225
  6. ACETYLSALICYLIC ACID [Concomitant]
     Indication: DRUG USE FOR UNKNOWN INDICATION
     Route: 065

REACTIONS (4)
  - DRUG EXPOSURE DURING PREGNANCY [None]
  - INTRA-UTERINE DEATH [None]
  - POSTPARTUM HAEMORRHAGE [None]
  - PREMATURE SEPARATION OF PLACENTA [None]
